FAERS Safety Report 4556855-3 (Version None)
Quarter: 2005Q1

REPORT INFORMATION
  Report Type: 
  Country: None (occurrence: None)
  Receive Date: 20050120
  Receipt Date: 20050112
  Transmission Date: 20050727
  Serious: Yes (Hospitalization)
  Sender: FDA-Public Use
  Company Number: US-MERCK-0501USA01582

PATIENT
  Age: 27 Year
  Sex: Male

DRUGS (3)
  1. CRIXIVAN [Suspect]
     Indication: HIV INFECTION
     Route: 048
  2. LAMIVUDINE [Concomitant]
     Indication: HIV INFECTION
     Route: 065
  3. ZIDOVUDINE [Concomitant]
     Indication: HIV INFECTION
     Route: 065

REACTIONS (5)
  - ACUTE PROMYELOCYTIC LEUKAEMIA [None]
  - HEPATIC FUNCTION ABNORMAL [None]
  - MUCOSAL INFLAMMATION [None]
  - NEPHROLITHIASIS [None]
  - PANCYTOPENIA [None]
